FAERS Safety Report 8995292 (Version 2)
Quarter: 2013Q1

REPORT INFORMATION
  Report Type: Spontaneous
  Country: US (occurrence: US)
  Receive Date: 20130102
  Receipt Date: 20130204
  Transmission Date: 20140127
  Serious: No
  Sender: FDA-Public Use
  Company Number: US-AMGEN-USASP2012079201

PATIENT
  Age: 47 Year
  Sex: Female
  Weight: 81.45 kg

DRUGS (12)
  1. ENBREL [Suspect]
     Indication: PSORIASIS
     Dosage: 50 MG, QWK
     Route: 058
     Dates: start: 20121010
  2. SYNTHROID [Concomitant]
     Dosage: 75 MUG, 1 TABLET EVERY MOMING ON AN EMPTY STOMACHQD
  3. VITAMIN A + D                      /00343801/ [Concomitant]
     Dosage: 5000-400 UNIT
     Dates: start: 201011
  4. FISH OIL [Concomitant]
     Dosage: 1000 MG, QD
  5. MICARDIS HCT [Concomitant]
     Dosage: 40-12.5MG
  6. BIOTIN [Concomitant]
     Dosage: 5000 MUG, QD
  7. CALCIUM +D                         /00944201/ [Concomitant]
     Dosage: 600-400 MG, BID
  8. PENNSAID [Concomitant]
     Dosage: 1.5 UNK,4-6 HOURS
  9. FLEXERIL                           /00428402/ [Concomitant]
     Dosage: 10 MG, BID
  10. LYRICA [Concomitant]
     Dosage: 100 UNK, TID
     Dates: start: 201011
  11. METHOTREXATE [Concomitant]
     Dosage: 2.5 MG,8 TABLETS ONCE A WEEK
     Dates: start: 201107
  12. FOLIC ACID [Concomitant]
     Dosage: 1 MG, QD

REACTIONS (14)
  - Epicondylitis [Unknown]
  - Polyarthritis [Unknown]
  - Plantar fascial fibromatosis [Unknown]
  - Myositis [Unknown]
  - Influenza like illness [Recovered/Resolved]
  - Rash [Unknown]
  - Arthralgia [Unknown]
  - Nail ridging [Unknown]
  - Fatigue [Unknown]
  - Musculoskeletal stiffness [Unknown]
  - Productive cough [Unknown]
  - Joint crepitation [Unknown]
  - Bronchitis [Unknown]
  - Nasopharyngitis [Not Recovered/Not Resolved]
